FAERS Safety Report 9699946 (Version 2)
Quarter: 2014Q1

REPORT INFORMATION
  Report Type: Spontaneous
  Country: JP (occurrence: JP)
  Receive Date: 20131121
  Receipt Date: 20140207
  Transmission Date: 20141002
  Serious: Yes (Other)
  Sender: FDA-Public Use
  Company Number: JP-009507513-1311JPN006948

PATIENT
  Age: 49 Year
  Sex: Male

DRUGS (12)
  1. REMERON [Suspect]
     Indication: DEPRESSION
     Dosage: 15 MG, QD
     Route: 048
     Dates: start: 20131004, end: 20131120
  2. RESLIN TABLETS 25 [Concomitant]
     Indication: DEPRESSION
     Dosage: 25 MG, QD
     Route: 048
     Dates: start: 20130628, end: 20130711
  3. RESLIN TABLETS 25 [Concomitant]
     Indication: SLEEP DISORDER
  4. RESLIN TABLETS 50 [Concomitant]
     Indication: DEPRESSION
     Dosage: 50 MG, QD
     Route: 048
     Dates: start: 20130712, end: 20130919
  5. RESLIN TABLETS 50 [Concomitant]
     Indication: SLEEP DISORDER
  6. ZOLPIDEM TARTRATE [Concomitant]
     Indication: SLEEP DISORDER
     Dosage: 10 MG, QD
     Route: 048
     Dates: start: 20130614, end: 20130919
  7. ROHYPNOL [Concomitant]
     Indication: SLEEP DISORDER
     Dosage: 1 MG, QD
     Route: 048
     Dates: start: 20130614, end: 20130627
  8. SULPIRIDE [Concomitant]
     Indication: DEPRESSION
     Dosage: 50 MG, TID
     Route: 048
     Dates: start: 20130726, end: 20130808
  9. SULPIRIDE [Concomitant]
     Indication: SLEEP DISORDER
     Dosage: 100 MG, TID
     Route: 048
     Dates: start: 20130809, end: 20131003
  10. SULPIRIDE [Concomitant]
     Dosage: 100 MG, BID
     Route: 048
     Dates: start: 20131004, end: 20131104
  11. FEXOFENADINE HYDROCHLORIDE [Concomitant]
     Indication: COUGH
     Dosage: 60 MG, BID
     Route: 048
     Dates: start: 20130624, end: 20131119
  12. FLUTICASONE PROPIONATE [Concomitant]
     Indication: COUGH
     Dosage: 200 MICROGRAM, BID
     Route: 055
     Dates: start: 20130624, end: 20131119

REACTIONS (9)
  - Tonic convulsion [Recovered/Resolved]
  - Metabolic acidosis [Recovered/Resolved]
  - Blood thyroid stimulating hormone increased [Recovered/Resolved]
  - Ammonia increased [Recovered/Resolved]
  - Altered state of consciousness [Recovered/Resolved]
  - Fall [Recovered/Resolved]
  - Joint injury [Unknown]
  - Suture insertion [Unknown]
  - Delirium [Recovered/Resolved]
